FAERS Safety Report 7465861-0 (Version None)
Quarter: 2011Q2

REPORT INFORMATION
  Report Type: 
  Country: None (occurrence: None)
  Receive Date: 20110509
  Receipt Date: 20100408
  Transmission Date: 20111010
  Serious: No
  Sender: FDA-Public Use
  Company Number: US-ALEXION-A201000348

PATIENT
  Sex: Female

DRUGS (21)
  1. DIGOXIN [Concomitant]
  2. ALDACTONE [Concomitant]
  3. ACYCLOVIR [Concomitant]
  4. PROTONIX [Concomitant]
  5. SOLIRIS [Suspect]
     Indication: PAROXYSMAL NOCTURNAL HAEMOGLOBINURIA
     Dosage: 600 MG, QW
     Route: 042
     Dates: start: 20081217, end: 20090101
  6. PRIMATENE MIST [Concomitant]
  7. PRODUR [Concomitant]
  8. SYNTHROID [Concomitant]
  9. DARVOCET [Concomitant]
  10. ALBUTEROL [Concomitant]
  11. IMDUR [Concomitant]
  12. ATIVAN [Concomitant]
  13. PROZAC                             /00724401/ [Concomitant]
  14. LASIX [Concomitant]
  15. MICARDIS [Concomitant]
  16. K-DUR [Concomitant]
  17. ASPIRIN [Concomitant]
  18. DILTIAZEM [Concomitant]
  19. SOLIRIS [Suspect]
     Dosage: 900 MG, UNK
     Route: 042
     Dates: start: 20090116
  20. SINGULAIR [Concomitant]
  21. FOLIC ACID [Concomitant]

REACTIONS (1)
  - HAEMOLYSIS [None]
